FAERS Safety Report 4596183-3 (Version None)
Quarter: 2005Q1

REPORT INFORMATION
  Report Type: 
  Country: None (occurrence: None)
  Receive Date: 20050225
  Receipt Date: 20050223
  Transmission Date: 20050727
  Serious: Yes (Life-Threatening, Hospitalization, Other)
  Sender: FDA-Public Use
  Company Number: HQWYE505323FEB05

PATIENT
  Age: 32 Year
  Sex: Male

DRUGS (2)
  1. PIPRACIL [Suspect]
     Indication: BACTERIAL SEPSIS
  2. PIPRACIL [Suspect]
     Indication: COLOSTOMY INFECTION

REACTIONS (1)
  - JAUNDICE CHOLESTATIC [None]
